FAERS Safety Report 4450098-X (Version None)
Quarter: 2004Q3

REPORT INFORMATION
  Report Type: 
  Country: None (occurrence: None)
  Receive Date: 20040915
  Receipt Date: 20040903
  Transmission Date: 20050211
  Serious: Yes (Life-Threatening, Hospitalization)
  Sender: FDA-Public Use
  Company Number: DK-MERCK-0409DNK00001

PATIENT
  Age: 86 Year
  Sex: Male

DRUGS (3)
  1. MAGNYL [Concomitant]
     Route: 048
  2. LACTULOSE [Concomitant]
     Route: 065
  3. COZAAR [Suspect]
     Indication: HYPERTENSION
     Route: 048
     Dates: start: 20040423, end: 20040727

REACTIONS (2)
  - APHTHOUS STOMATITIS [None]
  - ERYTHEMA MULTIFORME [None]
